FAERS Safety Report 21334839 (Version 1)
Quarter: 2022Q3

REPORT INFORMATION
  Report Type: Spontaneous
  Country: BE (occurrence: BE)
  Receive Date: 20220914
  Receipt Date: 20220914
  Transmission Date: 20221026
  Serious: Yes (Other)
  Sender: FDA-Public Use
  Company Number: BE-PFM-2022-06864

PATIENT

DRUGS (1)
  1. PROPRANOLOL HYDROCHLORIDE [Suspect]
     Active Substance: PROPRANOLOL HYDROCHLORIDE
     Indication: Infantile haemangioma
     Dosage: 4 DF
     Route: 048
     Dates: start: 20220426

REACTIONS (3)
  - Crying [Recovered/Resolved]
  - Restlessness [Recovered/Resolved]
  - Pallor [Recovered/Resolved]
